FAERS Safety Report 4867453-6 (Version None)
Quarter: 2005Q4

REPORT INFORMATION
  Report Type: 
  Country: None (occurrence: None)
  Receive Date: 20051228
  Receipt Date: 20050914
  Transmission Date: 20060501
  Serious: Yes (Hospitalization)
  Sender: FDA-Public Use
  Company Number: US-MERCK-0509USA01940

PATIENT
  Age: 66 Year
  Sex: Male
  Weight: 136 kg

DRUGS (3)
  1. VIOXX [Suspect]
     Indication: OSTEOARTHRITIS
     Route: 048
     Dates: start: 20021120, end: 20040927
  2. ASPIRIN [Concomitant]
     Route: 065
     Dates: start: 19940101, end: 20040109
  3. CELEBREX [Concomitant]
     Route: 065
     Dates: start: 20010101

REACTIONS (6)
  - CEREBRAL ARTERY OCCLUSION [None]
  - EYE DISORDER [None]
  - GASTROENTERITIS VIRAL [None]
  - HIGH DENSITY LIPOPROTEIN DECREASED [None]
  - REHABILITATION THERAPY [None]
  - TRANSIENT ISCHAEMIC ATTACK [None]
